FAERS Safety Report 14291793 (Version 1)
Quarter: 2017Q4

REPORT INFORMATION
  Report Type: Not Available
  Country: US (occurrence: US)
  Receive Date: 20171215
  Receipt Date: 20171215
  Transmission Date: 20180321
  Serious: No
  Sender: FDA-Public Use
  Company Number: US-NEUROCRINE BIOSCIENCES INC.-2017NBI01335

PATIENT
  Age: 53 Year
  Sex: Male

DRUGS (6)
  1. PAROXETINE. [Concomitant]
     Active Substance: PAROXETINE
  2. INGREZZA [Suspect]
     Active Substance: VALBENAZINE
     Indication: TARDIVE DYSKINESIA
     Route: 048
     Dates: start: 20170801, end: 2017
  3. LITHIUM. [Concomitant]
     Active Substance: LITHIUM
  4. LISINOPRIL. [Concomitant]
     Active Substance: LISINOPRIL
  5. TRAZODONE [Concomitant]
     Active Substance: TRAZODONE HYDROCHLORIDE
  6. LEVOTHYROXINE. [Concomitant]
     Active Substance: LEVOTHYROXINE

REACTIONS (1)
  - Somnolence [Unknown]

NARRATIVE: CASE EVENT DATE: 20170831
